FAERS Safety Report 9432513 (Version 1)
Quarter: 2013Q3

REPORT INFORMATION
  Report Type: Spontaneous
  Country: JP (occurrence: JP)
  Receive Date: 20130731
  Receipt Date: 20130731
  Transmission Date: 20140515
  Serious: Yes (Hospitalization)
  Sender: FDA-Public Use
  Company Number: JP-NOVOPROD-380139

PATIENT
  Age: 74 Year
  Sex: Male
  Weight: 70 kg

DRUGS (7)
  1. TRESIBA CHU FLEXTOUCH [Suspect]
     Indication: TYPE 2 DIABETES MELLITUS
     Dosage: 6 U, QD
     Route: 058
     Dates: start: 20130426, end: 20130617
  2. NOVORAPID CHU [Suspect]
     Indication: TYPE 2 DIABETES MELLITUS
     Dosage: UNK
     Route: 058
     Dates: start: 20130612, end: 20130614
  3. HUMULIN R [Suspect]
     Indication: TYPE 2 DIABETES MELLITUS
     Dosage: UNK
     Route: 058
     Dates: start: 20130610, end: 20130612
  4. HUMALOG MIX [Suspect]
     Indication: TYPE 2 DIABETES MELLITUS
     Dosage: HUMALOG MIX50
     Route: 058
     Dates: start: 20130615
  5. LANTUS [Concomitant]
     Indication: TYPE 2 DIABETES MELLITUS
     Dosage: UNK
     Route: 058
     Dates: start: 20130618
  6. EQUA [Concomitant]
     Indication: TYPE 2 DIABETES MELLITUS
     Dosage: 100 MG, QD
     Route: 048
     Dates: start: 20130426
  7. METGLUCO [Concomitant]
     Indication: TYPE 2 DIABETES MELLITUS
     Dosage: 500 MG, QD
     Route: 048

REACTIONS (2)
  - Hepatic function abnormal [Recovering/Resolving]
  - Diabetes mellitus inadequate control [Recovering/Resolving]
